FAERS Safety Report 9396416 (Version 1)
Quarter: 2013Q3

REPORT INFORMATION
  Report Type: Spontaneous
  Country: US (occurrence: None)
  Receive Date: 20130708
  Receipt Date: 20130708
  Transmission Date: 20140515
  Serious: Yes (Other)
  Sender: FDA-Public Use
  Company Number: 2011-219

PATIENT
  Age: 60 Year
  Sex: Male

DRUGS (2)
  1. PRIALT [Suspect]
     Dosage: MCG, ONCE/HOUR
     Route: 037
  2. DILAUDID (HYDROMORPHONE HYDROCHLORIDE) [Suspect]
     Dosage: MG, ONCE/HOUR
     Route: 037

REACTIONS (3)
  - Surgery [None]
  - General physical health deterioration [None]
  - Pain [None]
